FAERS Safety Report 12388978 (Version 1)
Quarter: 2016Q2

REPORT INFORMATION
  Report Type: Spontaneous
  Country: JP (occurrence: JP)
  Receive Date: 20160520
  Receipt Date: 20160520
  Transmission Date: 20160815
  Serious: Yes (Death)
  Sender: FDA-Public Use
  Company Number: JP-NOVOPROD-491548

PATIENT
  Age: 83 Year
  Sex: Female

DRUGS (2)
  1. RYZODEG 70/30 [Suspect]
     Active Substance: INSULIN ASPART\INSULIN DEGLUDEC
     Indication: TYPE 2 DIABETES MELLITUS
     Dosage: 4 U, QD
     Route: 058
     Dates: start: 20160119, end: 20160427
  2. TAKEPRON [Concomitant]
     Active Substance: LANSOPRAZOLE
     Indication: FEEDING TUBE USER
     Dosage: UNK
     Route: 048
     Dates: start: 201512, end: 201604

REACTIONS (2)
  - Cerebral infarction [Fatal]
  - Blood glucose increased [Unknown]

NARRATIVE: CASE EVENT DATE: 201604
